FAERS Safety Report 8334563 (Version 2)
Quarter: 2012Q4

REPORT INFORMATION
  Report Type: Spontaneous
  Country: GB (occurrence: None)
  Receive Date: 20120104
  Receipt Date: 20120822
  Transmission Date: 20130627
  Serious: Yes (Other)
  Sender: FDA-Public Use
  Company Number: 2011AP003115

PATIENT
  Age: 72 Year
  Sex: Male

DRUGS (5)
  1. LEFLUNOMIDE [Suspect]
     Indication: RHEUMATOID ARTHRITIS
     Dosage: 10 MG;QD
     Route: 048
     Dates: start: 20101214, end: 201104
  2. BENDROFLUAZIDE (BENDROFLUMETHIAZIDE) [Concomitant]
  3. LOSARTAN POTASSIUM [Concomitant]
  4. QVAR [Concomitant]
  5. ALBUTEROL SULFATE [Concomitant]

REACTIONS (1)
  - COLITIS MICROSCOPIC [None]
